FAERS Safety Report 4331779-5 (Version None)
Quarter: 2004Q2

REPORT INFORMATION
  Report Type: 
  Country: None (occurrence: None)
  Receive Date: 20040405
  Receipt Date: 20030723
  Transmission Date: 20050107
  Serious: No
  Sender: FDA-Public Use
  Company Number: US-GLAXOSMITHKLINE-A0418856A

PATIENT
  Age: 71 Year
  Sex: Female

DRUGS (5)
  1. FLOVENT [Suspect]
     Indication: UPPER RESPIRATORY TRACT INFECTION
     Dosage: 110MCG TWICE PER DAY
     Route: 055
     Dates: start: 20030722, end: 20030722
  2. VIOXX [Concomitant]
  3. PREMARIN [Concomitant]
  4. AVAPRO [Concomitant]
  5. K-DUR 10 [Concomitant]

REACTIONS (3)
  - BLOOD PRESSURE INCREASED [None]
  - SWOLLEN TONGUE [None]
  - TONGUE ULCERATION [None]
